FAERS Safety Report 15683298 (Version 2)
Quarter: 2018Q4

REPORT INFORMATION
  Report Type: Report from Study
  Country: DE (occurrence: DE)
  Receive Date: 20181204
  Receipt Date: 20181206
  Transmission Date: 20190205
  Serious: Yes (Hospitalization)
  Sender: FDA-Public Use
  Company Number: DE-ROCHE-2206721

PATIENT
  Age: 66 Year
  Sex: Male

DRUGS (5)
  1. DRONABINOL. [Suspect]
     Active Substance: DRONABINOL
     Indication: PRODUCT USED FOR UNKNOWN INDICATION
     Route: 065
  2. CEFUROX [Interacting]
     Active Substance: CEFUROXIME AXETIL
     Indication: CYSTITIS
  3. CEFUROX [Interacting]
     Active Substance: CEFUROXIME AXETIL
     Indication: NASOPHARYNGITIS
     Route: 042
  4. OCREVUS [Suspect]
     Active Substance: OCRELIZUMAB
     Indication: PRIMARY PROGRESSIVE MULTIPLE SCLEROSIS
     Route: 042
     Dates: start: 20180625
  5. TAMSULOSIN [Concomitant]
     Active Substance: TAMSULOSIN

REACTIONS (11)
  - Incontinence [Not Recovered/Not Resolved]
  - Drug interaction [Unknown]
  - Muscle spasticity [Recovered/Resolved]
  - Gait disturbance [Not Recovered/Not Resolved]
  - Nasopharyngitis [Not Recovered/Not Resolved]
  - Urinary incontinence [Recovered/Resolved]
  - Anal incontinence [Recovered/Resolved]
  - Cystitis [Not Recovered/Not Resolved]
  - Overdose [Unknown]
  - Body temperature increased [Recovered/Resolved]
  - Mobility decreased [Recovered/Resolved]

NARRATIVE: CASE EVENT DATE: 20181024
